FAERS Safety Report 22399887 (Version 1)
Quarter: 2023Q2

REPORT INFORMATION
  Report Type: Report from Study
  Country: IT (occurrence: IT)
  Receive Date: 20230602
  Receipt Date: 20230602
  Transmission Date: 20230722
  Serious: Yes (Death, Hospitalization)
  Sender: FDA-Public Use
  Company Number: IT-002147023-NVSC2019IT024524

PATIENT

DRUGS (6)
  1. RUXOLITINIB [Suspect]
     Active Substance: RUXOLITINIB
     Indication: Myelofibrosis
     Dosage: 10 MG, QD
     Route: 048
     Dates: start: 20180215, end: 20190916
  2. RUXOLITINIB [Suspect]
     Active Substance: RUXOLITINIB
     Dosage: 30 MG, QD
     Route: 065
     Dates: start: 20180301, end: 20180417
  3. RUXOLITINIB [Suspect]
     Active Substance: RUXOLITINIB
     Dosage: 10 MG, QD
     Route: 065
     Dates: start: 20180523, end: 20190915
  4. RUXOLITINIB [Suspect]
     Active Substance: RUXOLITINIB
     Dosage: 20 MG, QD
     Route: 065
     Dates: start: 20180418, end: 20180522
  5. ACETAMINOPHEN [Concomitant]
     Active Substance: ACETAMINOPHEN
     Indication: Product used for unknown indication
     Dosage: UNK
     Route: 065
  6. FUROSEMIDE [Concomitant]
     Active Substance: FUROSEMIDE
     Indication: Product used for unknown indication
     Dosage: UNK
     Route: 065

REACTIONS (16)
  - Mental status changes [Fatal]
  - Anaemia [Fatal]
  - General physical health deterioration [Fatal]
  - Gastrointestinal haemorrhage [Unknown]
  - Haematuria [Unknown]
  - Haemoptysis [Unknown]
  - Hepatic failure [Fatal]
  - Hyperammonaemia [Fatal]
  - Hypoalbuminaemia [Fatal]
  - Hypotension [Fatal]
  - Metabolic disorder [Unknown]
  - Leukocytosis [Fatal]
  - Renal failure [Fatal]
  - Respiratory failure [Fatal]
  - Thrombocytopenia [Fatal]
  - Condition aggravated [Fatal]

NARRATIVE: CASE EVENT DATE: 20190916
